FAERS Safety Report 25556923 (Version 3)
Quarter: 2025Q3

REPORT INFORMATION
  Report Type: Spontaneous
  Country: US (occurrence: US)
  Receive Date: 20250715
  Receipt Date: 20250912
  Transmission Date: 20251020
  Serious: No
  Sender: BIOGEN
  Company Number: US-BIOGEN-2025BI01316870

PATIENT
  Sex: Female

DRUGS (4)
  1. VUMERITY [Suspect]
     Active Substance: DIROXIMEL FUMARATE
     Indication: Multiple sclerosis
     Dosage: 231MG TWICE DAILY FOR 7 DAYS
     Route: 050
     Dates: start: 20250824, end: 20250830
  2. VUMERITY [Suspect]
     Active Substance: DIROXIMEL FUMARATE
     Dosage: 462MG TWICE DAILY
     Route: 050
     Dates: start: 20250831
  3. AQUAPHOR [Concomitant]
     Active Substance: PETROLATUM
     Route: 050
  4. TYLENOL [Concomitant]
     Active Substance: ACETAMINOPHEN
     Route: 050

REACTIONS (10)
  - Pain [Not Recovered/Not Resolved]
  - Dry skin [Not Recovered/Not Resolved]
  - Hypersomnia [Unknown]
  - Somnolence [Unknown]
  - Scratch [Unknown]
  - Scab [Unknown]
  - Pain in extremity [Unknown]
  - Dementia [Unknown]
  - Skin discolouration [Recovered/Resolved with Sequelae]
  - Erythema [Unknown]

NARRATIVE: CASE EVENT DATE: 20250101
